FAERS Safety Report 12595942 (Version 1)
Quarter: 2016Q3

REPORT INFORMATION
  Report Type: Spontaneous
  Country: US (occurrence: US)
  Receive Date: 20160726
  Receipt Date: 20160726
  Transmission Date: 20161109
  Serious: No
  Sender: FDA-Public Use
  Company Number: US-OREXO US, INC.-ORE201605-000075

PATIENT
  Age: 32 Year
  Sex: Female

DRUGS (1)
  1. ZUBSOLV [Suspect]
     Active Substance: BUPRENORPHINE HYDROCHLORIDE\NALOXONE HYDROCHLORIDE
     Indication: DRUG DEPENDENCE
     Dosage: 11.4 MG/2.9 MG
     Dates: start: 20160512, end: 20160512

REACTIONS (5)
  - Tongue disorder [Recovered/Resolved]
  - Drug dispensing error [Unknown]
  - Dysarthria [Not Recovered/Not Resolved]
  - Somnolence [Recovered/Resolved]
  - Medication error [Unknown]

NARRATIVE: CASE EVENT DATE: 20160512
